FAERS Safety Report 16130912 (Version 1)
Quarter: 2019Q1

REPORT INFORMATION
  Report Type: Spontaneous
  Country: US (occurrence: US)
  Receive Date: 20190328
  Receipt Date: 20190328
  Transmission Date: 20190418
  Serious: No
  Sender: FDA-Public Use
  Company Number: US-TEVA-2019-US-1021446

PATIENT
  Sex: Female

DRUGS (2)
  1. FIORICET [Suspect]
     Active Substance: ACETAMINOPHEN\BUTALBITAL\CAFFEINE
     Indication: HEADACHE
     Dosage: TAKE ONE AN HOUR, ONE TWO EVERY TWO HOURS
     Route: 065
  2. CODEINE [Suspect]
     Active Substance: CODEINE
     Indication: HEADACHE
     Dosage: TAKE ONE AN HOUR, ONE TWO EVERY TWO HOURS
     Route: 065

REACTIONS (2)
  - Musculoskeletal stiffness [Unknown]
  - Migraine [Unknown]
